FAERS Safety Report 5088515-7 (Version None)
Quarter: 2006Q3

REPORT INFORMATION
  Report Type: 
  Country: None (occurrence: None)
  Receive Date: 20060825
  Receipt Date: 20060823
  Transmission Date: 20061208
  Serious: Yes (Other)
  Sender: FDA-Public Use
  Company Number: US-RB-3774-2006

PATIENT
  Age: 9 Month
  Sex: Male

DRUGS (1)
  1. SUBOXONE [Suspect]
     Indication: DRUG USE FOR UNKNOWN INDICATION
     Route: 060

REACTIONS (5)
  - ACCIDENTAL EXPOSURE [None]
  - MENTAL STATUS CHANGES [None]
  - MIOSIS [None]
  - RESPIRATORY FAILURE [None]
  - SOMNOLENCE [None]
